FAERS Safety Report 4892489-9 (Version None)
Quarter: 2006Q1

REPORT INFORMATION
  Report Type: 
  Country: None (occurrence: None)
  Receive Date: 20060125
  Receipt Date: 20060125
  Transmission Date: 20060701
  Serious: Yes (Hospitalization)
  Sender: FDA-Public Use
  Company Number: None

PATIENT
  Age: 82 Year
  Sex: Female
  Weight: 61.2356 kg

DRUGS (1)
  1. BONIVA [Suspect]
     Indication: OSTEOPOROSIS
     Dosage: 150MG, ONCE/MONTH, ORAL
     Route: 048
     Dates: start: 20051128

REACTIONS (9)
  - ABASIA [None]
  - ARTHRALGIA [None]
  - ASTHENIA [None]
  - BONE PAIN [None]
  - IMPAIRED DRIVING ABILITY [None]
  - MYALGIA [None]
  - PAIN [None]
  - PYREXIA [None]
  - VOMITING [None]
